FAERS Safety Report 13074486 (Version 1)
Quarter: 2016Q4

REPORT INFORMATION
  Report Type: Report from Study
  Country: IT (occurrence: IT)
  Receive Date: 20161230
  Receipt Date: 20161230
  Transmission Date: 20170207
  Serious: Yes (Death)
  Sender: FDA-Public Use
  Company Number: IT-CIPLA LTD.-2016IT23922

PATIENT

DRUGS (2)
  1. CAPECITABINE. [Suspect]
     Active Substance: CAPECITABINE
     Indication: THYMOMA MALIGNANT
     Dosage: 650 MG/M2, (MG/MQ= MG/M2)  TWICE DAILY ON DAYS 1 TO 14
     Route: 048
  2. GEMCITABINE [Suspect]
     Active Substance: GEMCITABINE\GEMCITABINE HYDROCHLORIDE
     Indication: THYMOMA MALIGNANT
     Dosage: 1000 MG/M2, (MG/MQ= MG/M2) ON DAYS 1 AND 8 EVERY 3 WEEKS
     Route: 042

REACTIONS (1)
  - Death [Fatal]
